FAERS Safety Report 4554498-9 (Version None)
Quarter: 2005Q1

REPORT INFORMATION
  Report Type: 
  Country: None (occurrence: None)
  Receive Date: 20050114
  Receipt Date: 19990118
  Transmission Date: 20050727
  Serious: Yes (Hospitalization)
  Sender: FDA-Public Use
  Company Number: 99HQ-10009

PATIENT
  Age: 15 Year
  Sex: Male

DRUGS (2)
  1. DESIPRAMINE HCL [Suspect]
     Indication: ATTENTION DEFICIT/HYPERACTIVITY DISORDER
     Dosage: 300 MG DAY; 375 MG/DAY
  2. IBUPROFEN [Suspect]
     Indication: CHEST WALL PAIN
     Dosage: 600 MG, TID

REACTIONS (9)
  - BUNDLE BRANCH BLOCK RIGHT [None]
  - DEPRESSED LEVEL OF CONSCIOUSNESS [None]
  - DRUG INTERACTION INHIBITION [None]
  - DRUG LEVEL INCREASED [None]
  - ELECTROCARDIOGRAM QT CORRECTED INTERVAL PROLONGED [None]
  - GRAND MAL CONVULSION [None]
  - THERAPEUTIC AGENT TOXICITY [None]
  - VENTRICULAR TACHYCARDIA [None]
  - VISION BLURRED [None]
